FAERS Safety Report 5021984-7 (Version None)
Quarter: 2006Q2

REPORT INFORMATION
  Report Type: 
  Country: None (occurrence: None)
  Receive Date: 20060605
  Receipt Date: 20060530
  Transmission Date: 20061013
  Serious: Yes (Other)
  Sender: FDA-Public Use
  Company Number: US-2005-017438

PATIENT
  Age: 30 Year
  Sex: Female
  Weight: 59 kg

DRUGS (1)
  1. MIRENA [Suspect]
     Indication: CONTRACEPTION
     Dosage: 20 UG/DAY CONT, INTRA-UTERINE
     Route: 015
     Dates: start: 20041216

REACTIONS (5)
  - COMPLICATION OF PREGNANCY [None]
  - INTRA-UTERINE CONTRACEPTIVE DEVICE EXPELLED [None]
  - NORMAL NEWBORN [None]
  - PREGNANCY INDUCED HYPERTENSION [None]
  - PREGNANCY WITH CONTRACEPTIVE DEVICE [None]
